FAERS Safety Report 10015311 (Version 1)
Quarter: 2014Q1

REPORT INFORMATION
  Report Type: Spontaneous
  Country: US (occurrence: US)
  Receive Date: 20140317
  Receipt Date: 20140317
  Transmission Date: 20141002
  Serious: Yes (Hospitalization)
  Sender: FDA-Public Use
  Company Number: US-GLAXOSMITHKLINE-A1064352A

PATIENT
  Sex: Female

DRUGS (3)
  1. BENLYSTA [Suspect]
     Indication: SYSTEMIC LUPUS ERYTHEMATOSUS
     Dosage: 720MG UNKNOWN
     Route: 042
  2. ANTIBIOTIC [Concomitant]
     Indication: INFECTION PROPHYLAXIS
  3. UNKNOWN MEDICATION [Concomitant]

REACTIONS (2)
  - Pneumonia [Unknown]
  - Cough [Unknown]
